FAERS Safety Report 8561522-5 (Version None)
Quarter: 2012Q3

REPORT INFORMATION
  Report Type: 
  Country: None (occurrence: None)
  Receive Date: 20120802
  Receipt Date: 20120727
  Transmission Date: 20120928
  Serious: Yes (Hospitalization)
  Sender: FDA-Public Use
  Company Number: US-JNJFOC-20120714045

PATIENT
  Sex: Female

DRUGS (6)
  1. COGENTIN [Concomitant]
     Route: 048
  2. NAMENDA [Concomitant]
     Indication: DEMENTIA ALZHEIMER'S TYPE
     Route: 048
  3. INVEGA SUSTENNA [Suspect]
     Indication: PRODUCT USED FOR UNKNOWN INDICATION
     Route: 030
  4. RAZADYNE [Concomitant]
     Indication: DEMENTIA ALZHEIMER'S TYPE
     Route: 048
  5. SEROQUEL [Concomitant]
     Route: 048
  6. XANAX [Concomitant]
     Route: 048

REACTIONS (1)
  - HOSPITALISATION [None]
